FAERS Safety Report 12491116 (Version 1)
Quarter: 2016Q2

REPORT INFORMATION
  Report Type: Spontaneous
  Country: US (occurrence: US)
  Receive Date: 20160623
  Receipt Date: 20160623
  Transmission Date: 20160815
  Serious: No
  Sender: FDA-Public Use
  Company Number: US-ASTRAZENECA-2016SE65301

PATIENT
  Age: 23488 Day
  Sex: Female
  Weight: 147.4 kg

DRUGS (4)
  1. LANTUS [Concomitant]
     Active Substance: INSULIN GLARGINE
     Indication: TYPE 2 DIABETES MELLITUS
     Dosage: 48 UNITS AT NIGHT FOR THE PAST 5 YEARS
     Route: 058
  2. BYDUREON [Suspect]
     Active Substance: EXENATIDE
     Indication: TYPE 2 DIABETES MELLITUS
     Route: 058
     Dates: start: 20160403
  3. NOVOLIN R [Concomitant]
     Active Substance: INSULIN HUMAN
     Indication: TYPE 2 DIABETES MELLITUS
     Dosage: 9 UNITS TWICE DAILY FOR THE PAST 7 YEARS
     Route: 058
  4. TYLENOL [Concomitant]
     Active Substance: ACETAMINOPHEN
     Indication: PAIN
     Dosage: 500.0MG INTERMITTENT
     Route: 048

REACTIONS (7)
  - Decreased appetite [Unknown]
  - Peripheral coldness [Unknown]
  - Muscle spasms [Unknown]
  - Constipation [Unknown]
  - Tremor [Unknown]
  - Weight decreased [Unknown]
  - Memory impairment [Unknown]

NARRATIVE: CASE EVENT DATE: 20160410
